FAERS Safety Report 16936773 (Version 1)
Quarter: 2019Q4

REPORT INFORMATION
  Report Type: Spontaneous
  Country: HR (occurrence: HR)
  Receive Date: 20191018
  Receipt Date: 20191018
  Transmission Date: 20200122
  Serious: Yes (Other)
  Sender: FDA-Public Use
  Company Number: HR-ROCHE-2432766

PATIENT
  Age: 54 Year
  Sex: Male

DRUGS (44)
  1. ADVAGRAF [Suspect]
     Active Substance: TACROLIMUS
     Indication: IMMUNOSUPPRESSION
     Route: 065
     Dates: start: 20140924
  2. ADVAGRAF [Suspect]
     Active Substance: TACROLIMUS
     Dosage: 2.5 MG, UNKNOWN FREQ.
     Route: 065
     Dates: start: 201703
  3. ADVAGRAF [Suspect]
     Active Substance: TACROLIMUS
     Dosage: 4 MG, UNKNOWN FREQ.
     Route: 065
     Dates: start: 201412
  4. ADVAGRAF [Suspect]
     Active Substance: TACROLIMUS
     Dosage: 2.5 MG, UNKNOWN FREQ.
     Route: 065
     Dates: start: 201703
  5. ADVAGRAF [Suspect]
     Active Substance: TACROLIMUS
     Dosage: 4 MG, UNKNOWN FREQ.
     Route: 065
     Dates: start: 201412
  6. ADVAGRAF [Suspect]
     Active Substance: TACROLIMUS
     Dosage: 2.5 MG, UNKNOWN FREQ.
     Route: 065
     Dates: start: 201703
  7. ADVAGRAF [Suspect]
     Active Substance: TACROLIMUS
     Dosage: 3.5 MG, UNKNOWN FREQ.
     Route: 065
     Dates: start: 201504
  8. ADVAGRAF [Suspect]
     Active Substance: TACROLIMUS
     Dosage: 2.5 MG, UNKNOWN FREQ.
     Route: 065
     Dates: start: 201805
  9. ADVAGRAF [Suspect]
     Active Substance: TACROLIMUS
     Dosage: 3 MG, UNKNOWN FREQ.
     Route: 065
     Dates: start: 201605
  10. ADVAGRAF [Suspect]
     Active Substance: TACROLIMUS
     Dosage: 4 MG, UNKNOWN FREQ.
     Route: 065
     Dates: start: 20140924
  11. ADVAGRAF [Suspect]
     Active Substance: TACROLIMUS
     Dosage: 4 MG, UNKNOWN FREQ.
     Route: 065
     Dates: start: 20140924
  12. ADVAGRAF [Suspect]
     Active Substance: TACROLIMUS
     Dosage: 4 MG, UNKNOWN FREQ.
     Route: 065
     Dates: start: 20140924
  13. ADVAGRAF [Suspect]
     Active Substance: TACROLIMUS
     Dosage: 4 MG, UNKNOWN FREQ.
     Route: 065
     Dates: start: 201412
  14. ADVAGRAF [Suspect]
     Active Substance: TACROLIMUS
     Dosage: 4 MG, UNKNOWN FREQ.
     Route: 065
     Dates: start: 201412
  15. ADVAGRAF [Suspect]
     Active Substance: TACROLIMUS
     Dosage: 4 MG, UNKNOWN FREQ.
     Route: 065
     Dates: start: 20140924
  16. ADVAGRAF [Suspect]
     Active Substance: TACROLIMUS
     Dosage: 3.5 MG, UNKNOWN FREQ.
     Route: 065
     Dates: start: 201504
  17. ADVAGRAF [Suspect]
     Active Substance: TACROLIMUS
     Dosage: 2.5 MG, UNKNOWN FREQ.
     Route: 065
     Dates: start: 201703
  18. ADVAGRAF [Suspect]
     Active Substance: TACROLIMUS
     Dosage: 2.5 MG, UNKNOWN FREQ.
     Route: 065
     Dates: start: 201805
  19. ADVAGRAF [Suspect]
     Active Substance: TACROLIMUS
     Dosage: 2.5 MG, UNKNOWN FREQ.
     Route: 065
     Dates: start: 201703
  20. ADVAGRAF [Suspect]
     Active Substance: TACROLIMUS
     Dosage: 2.5 MG, UNKNOWN FREQ.
     Route: 065
     Dates: start: 201805
  21. ADVAGRAF [Suspect]
     Active Substance: TACROLIMUS
     Dosage: 4 MG, UNKNOWN FREQ.
     Route: 065
     Dates: start: 20140924
  22. ADVAGRAF [Suspect]
     Active Substance: TACROLIMUS
     Dosage: 2.5 MG, UNKNOWN FREQ.
     Route: 065
     Dates: start: 201805
  23. ADVAGRAF [Suspect]
     Active Substance: TACROLIMUS
     Dosage: 3 MG, UNKNOWN FREQ.
     Route: 065
     Dates: start: 201605
  24. ADVAGRAF [Suspect]
     Active Substance: TACROLIMUS
     Dosage: 4 MG, UNKNOWN FREQ.
     Route: 065
     Dates: start: 201412
  25. ADVAGRAF [Suspect]
     Active Substance: TACROLIMUS
     Dosage: 2.5 MG, UNKNOWN FREQ.
     Route: 065
     Dates: start: 201703
  26. ADVAGRAF [Suspect]
     Active Substance: TACROLIMUS
     Dosage: 3.5 MG, UNKNOWN FREQ.
     Route: 065
     Dates: start: 201504
  27. ADVAGRAF [Suspect]
     Active Substance: TACROLIMUS
     Dosage: 4 MG, UNKNOWN FREQ.
     Route: 065
     Dates: start: 201412
  28. ADVAGRAF [Suspect]
     Active Substance: TACROLIMUS
     Dosage: 3 MG, UNKNOWN FREQ.
     Route: 065
     Dates: start: 201605
  29. ADVAGRAF [Suspect]
     Active Substance: TACROLIMUS
     Dosage: 4 MG, UNKNOWN FREQ.
     Route: 065
     Dates: start: 201412
  30. ADVAGRAF [Suspect]
     Active Substance: TACROLIMUS
     Dosage: 2.5 MG, UNKNOWN FREQ.
     Route: 065
     Dates: start: 201805
  31. ADVAGRAF [Suspect]
     Active Substance: TACROLIMUS
     Dosage: 3.5 MG, UNKNOWN FREQ.
     Route: 065
     Dates: start: 201504
  32. ADVAGRAF [Suspect]
     Active Substance: TACROLIMUS
     Dosage: 3 MG, UNKNOWN FREQ.
     Route: 065
     Dates: start: 201605
  33. ADVAGRAF [Suspect]
     Active Substance: TACROLIMUS
     Dosage: 4 MG, UNKNOWN FREQ.
     Route: 065
     Dates: start: 20140924
  34. MYCOPHENOLATE MOFETIL. [Suspect]
     Active Substance: MYCOPHENOLATE MOFETIL
     Indication: IMMUNOSUPPRESSION
     Route: 065
  35. ADVAGRAF [Suspect]
     Active Substance: TACROLIMUS
     Dosage: 3.5 MG, UNKNOWN FREQ.
     Route: 065
     Dates: start: 201504
  36. ADVAGRAF [Suspect]
     Active Substance: TACROLIMUS
     Dosage: 3.5 MG, UNKNOWN FREQ.
     Route: 065
     Dates: start: 201504
  37. ADVAGRAF [Suspect]
     Active Substance: TACROLIMUS
     Dosage: 2.5 MG, UNKNOWN FREQ.
     Route: 065
     Dates: start: 201703
  38. ADVAGRAF [Suspect]
     Active Substance: TACROLIMUS
     Dosage: 3 MG, UNKNOWN FREQ.
     Route: 065
     Dates: start: 201605
  39. ADVAGRAF [Suspect]
     Active Substance: TACROLIMUS
     Dosage: 3 MG, UNKNOWN FREQ.
     Route: 065
     Dates: start: 201605
  40. ADVAGRAF [Suspect]
     Active Substance: TACROLIMUS
     Dosage: 2.5 MG, UNKNOWN FREQ.
     Route: 065
     Dates: start: 201805
  41. ADVAGRAF [Suspect]
     Active Substance: TACROLIMUS
     Dosage: 2.5 MG, UNKNOWN FREQ.
     Route: 065
     Dates: start: 201805
  42. ADVAGRAF [Suspect]
     Active Substance: TACROLIMUS
     Dosage: 3 MG, UNKNOWN FREQ.
     Route: 065
     Dates: start: 201605
  43. ADVAGRAF [Suspect]
     Active Substance: TACROLIMUS
     Dosage: 3.5 MG, UNKNOWN FREQ.
     Route: 065
     Dates: start: 201504
  44. PROGRAF [Suspect]
     Active Substance: TACROLIMUS
     Indication: IMMUNOSUPPRESSION
     Route: 065

REACTIONS (3)
  - Hepatic enzyme increased [Unknown]
  - Biliary anastomosis complication [Unknown]
  - Renal impairment [Unknown]
